FAERS Safety Report 9262399 (Version 1)
Quarter: 2013Q2

REPORT INFORMATION
  Report Type: Spontaneous
  Country: US (occurrence: None)
  Receive Date: 20130429
  Receipt Date: 20130429
  Transmission Date: 20140414
  Serious: Yes (Death, Hospitalization)
  Sender: FDA-Public Use
  Company Number: 2013ST000097

PATIENT
  Age: 57 Year
  Sex: Female

DRUGS (12)
  1. METFORMIN [Suspect]
     Indication: DIABETES MELLITUS
  2. MIRTAZAPINE [Concomitant]
  3. ATORVASTATIN [Concomitant]
  4. GLIPIZIDE [Concomitant]
  5. GLIMEPIRIDE [Concomitant]
  6. PIOGLITAZONE [Concomitant]
  7. TRAZODONE [Concomitant]
  8. LOSARTAN [Concomitant]
  9. CLONAZEPAM [Concomitant]
  10. UBIDECARENONE [Concomitant]
  11. ASPIRIN [Concomitant]
  12. VITAMINS NOSE [Concomitant]

REACTIONS (15)
  - Toxicity to various agents [None]
  - Completed suicide [None]
  - Intentional overdose [None]
  - Stomatitis [None]
  - Hypotension [None]
  - Depressed level of consciousness [None]
  - Vomiting [None]
  - Diarrhoea [None]
  - Blood glucose increased [None]
  - Heart rate increased [None]
  - Blood sodium decreased [None]
  - Blood potassium increased [None]
  - Anion gap decreased [None]
  - Haemodialysis [None]
  - Gastric mucosa erythema [None]
